FAERS Safety Report 4642738-7 (Version None)
Quarter: 2005Q2

REPORT INFORMATION
  Report Type: 
  Country: None (occurrence: None)
  Receive Date: 20050420
  Receipt Date: 20050331
  Transmission Date: 20051028
  Serious: Yes (Hospitalization)
  Sender: FDA-Public Use
  Company Number: FR_050306147

PATIENT
  Age: 54 Year
  Sex: Male

DRUGS (6)
  1. GEMZAR [Suspect]
     Indication: LUNG NEOPLASM
     Dates: start: 20050124, end: 20050131
  2. BACTRIM [Concomitant]
  3. IMOVANE (ZOPICLONE) [Concomitant]
  4. VIRACEPT [Concomitant]
  5. COMBIVIR [Concomitant]
  6. NEXIUM [Concomitant]

REACTIONS (1)
  - HEPATITIS CHOLESTATIC [None]
